FAERS Safety Report 23157347 (Version 1)
Quarter: 2023Q4

REPORT INFORMATION
  Report Type: Spontaneous
  Country: CN (occurrence: CN)
  Receive Date: 20231108
  Receipt Date: 20231108
  Transmission Date: 20240109
  Serious: Yes (Other)
  Sender: FDA-Public Use
  Company Number: None

PATIENT
  Age: 41 Year
  Sex: Female
  Weight: 48 kg

DRUGS (6)
  1. CYCLOPHOSPHAMIDE [Suspect]
     Active Substance: CYCLOPHOSPHAMIDE
     Indication: Breast cancer female
     Dosage: 0.8 G, ONE TIME IN ONE DAY IN DILUTION WITH 100 ML OF SODIUM CHLORIDE, FOURTH CYCLE OF CHEMOTHERAPY
     Route: 041
     Dates: start: 20230927, end: 20230927
  2. CYCLOPHOSPHAMIDE [Suspect]
     Active Substance: CYCLOPHOSPHAMIDE
     Indication: Chemotherapy
  3. SODIUM CHLORIDE [Suspect]
     Active Substance: SODIUM CHLORIDE
     Indication: Medication dilution
     Dosage: 250 ML, ONCE A DAY USED TO DILUTE 135 MG OF EPIRUBICIN, FOURTH CYCLE OF CHEMOTHERAPY
     Route: 041
     Dates: start: 20230927, end: 20230927
  4. SODIUM CHLORIDE [Suspect]
     Active Substance: SODIUM CHLORIDE
     Dosage: 100 ML ONCE A DAY USED TO DILUTE 0.8 G OF CYCLOPHOSPHAMIDE, FOURTH CYCLE OF CHEMOTHERAPY
     Route: 041
     Dates: start: 20230927, end: 20230927
  5. EPIRUBICIN HYDROCHLORIDE [Suspect]
     Active Substance: EPIRUBICIN HYDROCHLORIDE
     Indication: Breast cancer female
     Dosage: 130 MG, ONE TME IN ONE DAY IN DILUTION WITH 250 ML OF SODIUM CHLORIDE, FOURTH CYCLE OF CHEMOTHERAPY
     Route: 041
     Dates: start: 20230927, end: 20230927
  6. EPIRUBICIN HYDROCHLORIDE [Suspect]
     Active Substance: EPIRUBICIN HYDROCHLORIDE
     Indication: Chemotherapy

REACTIONS (2)
  - Myelosuppression [Recovered/Resolved]
  - Full blood count decreased [Unknown]

NARRATIVE: CASE EVENT DATE: 20231010
